FAERS Safety Report 4639266-1 (Version None)
Quarter: 2005Q2

REPORT INFORMATION
  Report Type: 
  Country: None (occurrence: None)
  Receive Date: 20050418
  Receipt Date: 20050404
  Transmission Date: 20051028
  Serious: Yes (Hospitalization, Other)
  Sender: FDA-Public Use
  Company Number: HQWYE791007APR05

PATIENT
  Sex: Male

DRUGS (2)
  1. EFFEXOR XR [Suspect]
     Dosage: 300 MG 1X PER 1 DAY, ORAL
     Route: 048
  2. RISPERDAL [Concomitant]
     Dosage: 4 MG 1X PER 1 DAY, ORAL
     Route: 048

REACTIONS (4)
  - ATRIOVENTRICULAR BLOCK [None]
  - CONVULSION [None]
  - DRUG INTERACTION [None]
  - TREATMENT NONCOMPLIANCE [None]
